FAERS Safety Report 5885939-2 (Version None)
Quarter: 2008Q3

REPORT INFORMATION
  Report Type: 
  Country: None (occurrence: None)
  Receive Date: 20080917
  Receipt Date: 20080908
  Transmission Date: 20090109
  Serious: Yes (Other)
  Sender: FDA-Public Use
  Company Number: US-AMGEN-QUU306242

PATIENT
  Sex: Male

DRUGS (1)
  1. ARANESP [Suspect]
     Indication: RENAL FAILURE CHRONIC
     Dates: start: 20060101

REACTIONS (3)
  - CARDIAC FAILURE [None]
  - FATIGUE [None]
  - PERIPHERAL ARTERIAL OCCLUSIVE DISEASE [None]
